FAERS Safety Report 12961874 (Version 1)
Quarter: 2016Q4

REPORT INFORMATION
  Report Type: Spontaneous
  Country: US (occurrence: US)
  Receive Date: 20161121
  Receipt Date: 20161121
  Transmission Date: 20170207
  Serious: No
  Sender: FDA-Public Use
  Company Number: US-OSMOTICA_PHARMACEUTICAL_US_LLC-POI0573201600056

PATIENT
  Age: 47 Year
  Sex: Female
  Weight: 58.11 kg

DRUGS (8)
  1. DIVIGEL [Suspect]
     Active Substance: ESTRADIOL
     Indication: MENOPAUSAL SYMPTOMS
     Route: 062
     Dates: start: 20150324, end: 20150330
  2. SINGULAIR [Concomitant]
     Active Substance: MONTELUKAST SODIUM
     Dosage: HS
  3. METAMUCIL [Concomitant]
     Active Substance: PLANTAGO SEED
  4. CALCIUM [Concomitant]
     Active Substance: CALCIUM
     Dosage: WITH FOOD
  5. LOPERAMIDE HYDROCHLORIDE. [Concomitant]
     Active Substance: LOPERAMIDE HYDROCHLORIDE
  6. MELATONIN [Concomitant]
     Active Substance: MELATONIN
     Dosage: QHS, PRN WITH FOOD
  7. MULTIVITAMIN [Concomitant]
     Active Substance: VITAMINS
  8. ZOLOFT [Concomitant]
     Active Substance: SERTRALINE HYDROCHLORIDE

REACTIONS (2)
  - Rash [Recovered/Resolved]
  - Urticaria [Recovered/Resolved]

NARRATIVE: CASE EVENT DATE: 201503
